FAERS Safety Report 15097586 (Version 1)
Quarter: 2018Q2

REPORT INFORMATION
  Report Type: Spontaneous
  Country: US (occurrence: US)
  Receive Date: 20180610
  Receipt Date: 20180610
  Transmission Date: 20180711
  Serious: Yes (Disabling, Other)
  Sender: FDA-Public Use
  Company Number: None

PATIENT
  Age: 37 Year
  Sex: Male
  Weight: 102.6 kg

DRUGS (12)
  1. TRAMADOL HCL 50 MG GENERIC FOR TRAMADOL HCL [Suspect]
     Active Substance: TRAMADOL HYDROCHLORIDE
     Indication: BACK PAIN
     Dosage: ?          QUANTITY:120 TABLET(S);?
     Route: 048
     Dates: start: 20171024, end: 20180201
  2. BUSPIRONE [Concomitant]
     Active Substance: BUSPIRONE HYDROCHLORIDE
  3. MULTIVITAMIN [Concomitant]
     Active Substance: VITAMINS
  4. OMEGA 3 [Concomitant]
     Active Substance: OMEGA-3 FATTY ACIDS
  5. TRAMADOL HCL 50 MG GENERIC FOR TRAMADOL HCL [Suspect]
     Active Substance: TRAMADOL HYDROCHLORIDE
     Indication: MUSCLE SPASMS
     Dosage: ?          QUANTITY:120 TABLET(S);?
     Route: 048
     Dates: start: 20171024, end: 20180201
  6. TERMERIC [Concomitant]
  7. GARLIC. [Concomitant]
     Active Substance: GARLIC
  8. TRAMADOL HCL 50 MG GENERIC FOR TRAMADOL HCL [Suspect]
     Active Substance: TRAMADOL HYDROCHLORIDE
     Indication: ROAD TRAFFIC ACCIDENT
     Dosage: ?          QUANTITY:120 TABLET(S);?
     Route: 048
     Dates: start: 20171024, end: 20180201
  9. CAVEDILOL [Concomitant]
     Active Substance: CARVEDILOL
  10. DEXTROAMPHET SACCHARAT, AMPHET ASPARTATE, DEXTROAMPHET SULFATE AND AMPHET SULFAT [Concomitant]
     Active Substance: AMPHETAMINE ASPARTATE\AMPHETAMINE SULFATE\DEXTROAMPHETAMINE SACCHARATE\DEXTROAMPHETAMINE SULFATE
  11. DIAZEPAM. [Concomitant]
     Active Substance: DIAZEPAM
  12. MAGNESIUM [Suspect]
     Active Substance: MAGNESIUM

REACTIONS (2)
  - Penile size reduced [None]
  - Erectile dysfunction [None]

NARRATIVE: CASE EVENT DATE: 20171101
